FAERS Safety Report 8701554 (Version 3)
Quarter: 2013Q4

REPORT INFORMATION
  Report Type: Spontaneous
  Country: US (occurrence: US)
  Receive Date: 20120803
  Receipt Date: 20131003
  Transmission Date: 20140711
  Serious: Yes (Other)
  Sender: FDA-Public Use
  Company Number: US-009507513-1207USA011449

PATIENT
  Sex: Female

DRUGS (17)
  1. MAXALT [Suspect]
     Dosage: 10 MG, PRN
     Route: 048
     Dates: start: 2010
  2. FLEXERIL [Concomitant]
  3. RECLAST [Concomitant]
  4. LYRICA [Concomitant]
  5. TEMAZEPAM [Concomitant]
  6. PRILOSEC [Concomitant]
  7. VICODIN [Concomitant]
  8. NARATRIPTAN HYDROCHLORIDE [Concomitant]
  9. SUMATRIPTAN [Concomitant]
  10. IMITREX (SUMATRIPTAN) [Concomitant]
  11. ROZEREM [Concomitant]
  12. INDERAL [Concomitant]
  13. MOBIC [Concomitant]
  14. ARICEPT [Concomitant]
  15. LIPITOR [Concomitant]
  16. NAMEDIA [Concomitant]
  17. POTASSIUM (UNSPECIFIED) [Concomitant]

REACTIONS (6)
  - Serotonin syndrome [Not Recovered/Not Resolved]
  - Retinal scar [Not Recovered/Not Resolved]
  - Vitrectomy [Not Recovered/Not Resolved]
  - Migraine [Not Recovered/Not Resolved]
  - Abdominal discomfort [Not Recovered/Not Resolved]
  - Macular oedema [Unknown]
